FAERS Safety Report 21161042 (Version 1)
Quarter: 2022Q3

REPORT INFORMATION
  Report Type: Other
  Country: CA (occurrence: CA)
  Receive Date: 20220802
  Receipt Date: 20220802
  Transmission Date: 20221026
  Serious: Yes (Hospitalization, Other)
  Sender: FDA-Public Use
  Company Number: CA-PFIZER INC-202201025586

PATIENT

DRUGS (2)
  1. METHOTREXATE SODIUM [Suspect]
     Active Substance: METHOTREXATE SODIUM
     Indication: Inflammation
     Dosage: UNK
     Route: 065
  2. METHOTREXATE SODIUM [Suspect]
     Active Substance: METHOTREXATE SODIUM
     Indication: Condition aggravated

REACTIONS (6)
  - Overdose [Unknown]
  - Contraindicated product administered [Unknown]
  - Contraindicated product prescribed [Unknown]
  - Product communication issue [Unknown]
  - Pancytopenia [Unknown]
  - Mucosal inflammation [Unknown]
